FAERS Safety Report 19956744 (Version 6)
Quarter: 2022Q1

REPORT INFORMATION
  Report Type: Spontaneous
  Country: JP (occurrence: JP)
  Receive Date: 20211014
  Receipt Date: 20220112
  Transmission Date: 20220424
  Serious: Yes (Hospitalization, Other)
  Sender: FDA-Public Use
  Company Number: JP-SAKK-2021SA334940AA

PATIENT
  Age: 1 Year
  Sex: Male

DRUGS (2)
  1. SABRIL [Suspect]
     Active Substance: VIGABATRIN
     Indication: Muscle spasms
     Dosage: UNK
     Route: 048
     Dates: start: 20210701, end: 20211004
  2. SABRIL [Suspect]
     Active Substance: VIGABATRIN
     Dosage: UNK
     Route: 048
     Dates: start: 20211011

REACTIONS (5)
  - Respiratory failure [Unknown]
  - Seizure [Unknown]
  - Joint ankylosis [Recovering/Resolving]
  - Condition aggravated [Recovering/Resolving]
  - Bronchial secretion retention [Unknown]

NARRATIVE: CASE EVENT DATE: 20211001
